FAERS Safety Report 5536572-3 (Version None)
Quarter: 2007Q4

REPORT INFORMATION
  Report Type: 
  Country: None (occurrence: None)
  Receive Date: 20071206
  Receipt Date: 20070918
  Transmission Date: 20080405
  Serious: Yes (Other)
  Sender: FDA-Public Use
  Company Number: US-AMGEN-KDL240092

PATIENT
  Sex: Male
  Weight: 98.1 kg

DRUGS (12)
  1. ENBREL [Suspect]
     Indication: RHEUMATOID ARTHRITIS
     Route: 058
     Dates: start: 20070106, end: 20070821
  2. PREDNISONE TAB [Concomitant]
  3. CALCIUM [Concomitant]
  4. VITAMIN D [Concomitant]
  5. FOLIC ACID [Concomitant]
  6. VITAMIN B [Concomitant]
  7. INDERAL [Concomitant]
  8. VYTORIN [Concomitant]
  9. KEPPRA [Concomitant]
  10. DARVOCET [Concomitant]
  11. ASPIRIN [Concomitant]
  12. IRON [Concomitant]
     Dates: start: 20060101

REACTIONS (7)
  - ANAEMIA [None]
  - COLD AGGLUTININS POSITIVE [None]
  - DEPRESSION [None]
  - OSTEOPENIA [None]
  - PANCYTOPENIA [None]
  - PURPURA [None]
  - RHEUMATOID ARTHRITIS [None]
